FAERS Safety Report 11696649 (Version 1)
Quarter: 2015Q4

REPORT INFORMATION
  Report Type: Spontaneous
  Country: CN (occurrence: CN)
  Receive Date: 20151104
  Receipt Date: 20151104
  Transmission Date: 20160304
  Serious: Yes (Other)
  Sender: FDA-Public Use
  Company Number: CN-GLAXOSMITHKLINE-CN2015GSK156374

PATIENT
  Age: 56 Year

DRUGS (2)
  1. ADEFOVIR [Suspect]
     Active Substance: ADEFOVIR
     Indication: CHRONIC HEPATITIS B
     Dosage: UNK
  2. LAMIVUDINE. [Suspect]
     Active Substance: LAMIVUDINE
     Indication: CHRONIC HEPATITIS B

REACTIONS (7)
  - Drug resistance [Unknown]
  - Osteomalacia [Recovering/Resolving]
  - Blood phosphorus decreased [Unknown]
  - Pain [Unknown]
  - Gait disturbance [Unknown]
  - Hypophosphataemia [Recovering/Resolving]
  - Urine phosphorus increased [Unknown]
